FAERS Safety Report 4327843-7 (Version None)
Quarter: 2004Q1

REPORT INFORMATION
  Report Type: 
  Country: None (occurrence: None)
  Receive Date: 20040325
  Receipt Date: 20040312
  Transmission Date: 20041129
  Serious: Yes (Hospitalization, Disabling)
  Sender: FDA-Public Use
  Company Number: 04H-028-0253880-00

PATIENT
  Age: 49 Year
  Sex: Female

DRUGS (1)
  1. HEPARIN LOCK FLUSH [Suspect]
     Indication: ANTICOAGULANT THERAPY
     Dosage: 300 UNIT, TWICE DAILY,/300 UNIT, TWICE DAILY, INTRAVENOUS
     Route: 042
     Dates: start: 20000101

REACTIONS (4)
  - DEEP VEIN THROMBOSIS [None]
  - GRAND MAL CONVULSION [None]
  - HAEMORRHAGIC CEREBRAL INFARCTION [None]
  - HEPARIN-INDUCED THROMBOCYTOPENIA [None]
